FAERS Safety Report 11671177 (Version 2)
Quarter: 2015Q4

REPORT INFORMATION
  Report Type: Spontaneous
  Country: JP (occurrence: JP)
  Receive Date: 20151028
  Receipt Date: 20151110
  Transmission Date: 20160304
  Serious: Yes (Life-Threatening)
  Sender: FDA-Public Use
  Company Number: JP-ROCHE-1651918

PATIENT
  Age: 77 Year
  Sex: Female
  Weight: 35 kg

DRUGS (3)
  1. XELODA [Suspect]
     Active Substance: CAPECITABINE
     Indication: RECTAL CANCER
     Dosage: COMPLETED TREATMENT CYCLE NUMBER: EIGHT COURSES
     Route: 048
     Dates: start: 20150209, end: 20150803
  2. AVASTIN [Suspect]
     Active Substance: BEVACIZUMAB
     Indication: RECTAL CANCER
     Dosage: COMPLETED TREATMENT CYCLE NUMBER: EIGHT COURSES
     Route: 041
     Dates: start: 20150209, end: 20150803
  3. OXALIPLATIN. [Concomitant]
     Active Substance: OXALIPLATIN
     Indication: RECTAL CANCER
     Dosage: COMPLETED TREATMENT CYCLE NUMBER: EIGHT COURSES
     Route: 041
     Dates: start: 20150209, end: 20150803

REACTIONS (4)
  - Decreased appetite [Unknown]
  - Oesophageal perforation [Recovering/Resolving]
  - Aortic dissection [Recovering/Resolving]
  - Shock haemorrhagic [Unknown]

NARRATIVE: CASE EVENT DATE: 20150925
